FAERS Safety Report 4845681-3 (Version None)
Quarter: 2005Q4

REPORT INFORMATION
  Report Type: 
  Country: None (occurrence: None)
  Receive Date: 20051206
  Receipt Date: 20051012
  Transmission Date: 20060501
  Serious: Yes (Hospitalization, Other)
  Sender: FDA-Public Use
  Company Number: US-BOEHRINGER INGELHEIM PHARMACEUTICALS, INC.-2005-BP-18208BP

PATIENT
  Sex: Male

DRUGS (11)
  1. AGGRENOX [Suspect]
     Indication: TRANSIENT ISCHAEMIC ATTACK
     Route: 048
     Dates: start: 20050920, end: 20050930
  2. ACTIGALL [Concomitant]
  3. K-DUR 10 [Concomitant]
  4. LASIX [Concomitant]
  5. DIOVAN [Concomitant]
  6. DILTIAZEM HCL [Concomitant]
  7. TOPROL-XL [Concomitant]
  8. ZOLOFT [Concomitant]
  9. MINOXIDIL [Concomitant]
  10. ZAROXOLYN [Concomitant]
  11. KEPPRA [Concomitant]

REACTIONS (13)
  - ASTHENIA [None]
  - ATRIOVENTRICULAR BLOCK FIRST DEGREE [None]
  - BLOOD CREATININE INCREASED [None]
  - BLOOD UREA INCREASED [None]
  - BUNDLE BRANCH BLOCK LEFT [None]
  - CEREBRAL INFARCTION [None]
  - CEREBROVASCULAR ACCIDENT [None]
  - CHEST PAIN [None]
  - CONVULSION [None]
  - HEMIPLEGIA [None]
  - TREMOR [None]
  - VENTRICULAR EXTRASYSTOLES [None]
  - VOMITING [None]
